FAERS Safety Report 4522182-3 (Version None)
Quarter: 2004Q4

REPORT INFORMATION
  Report Type: 
  Country: None (occurrence: None)
  Receive Date: 20041207
  Receipt Date: 20041124
  Transmission Date: 20050328
  Serious: Yes (Life-Threatening, Hospitalization)
  Sender: FDA-Public Use
  Company Number: 2004099444

PATIENT
  Age: 26 Year
  Sex: Male

DRUGS (2)
  1. GEODON [Suspect]
     Indication: ILL-DEFINED DISORDER
     Dosage: 200 MG (2 IN 1 D)
  2. VALPROATE SODIUM [Concomitant]

REACTIONS (2)
  - ANTICONVULSANT DRUG LEVEL DECREASED [None]
  - NEUROLEPTIC MALIGNANT SYNDROME [None]
